FAERS Safety Report 8198434-5 (Version None)
Quarter: 2012Q1

REPORT INFORMATION
  Report Type: 
  Country: None (occurrence: None)
  Receive Date: 20120309
  Receipt Date: 20120306
  Transmission Date: 20120608
  Serious: Yes (Other)
  Sender: FDA-Public Use
  Company Number: PHEH2008US06596

PATIENT
  Sex: Male

DRUGS (59)
  1. GLUCOVANCE [Concomitant]
  2. FISH OIL [Concomitant]
     Dosage: 1000 MG, QD
  3. COREG [Concomitant]
  4. LANTUS [Concomitant]
  5. COUMADIN [Concomitant]
     Dosage: 3 MG QD
  6. CILOSTAZOL [Concomitant]
     Dosage: 2 DF, QD
  7. IMDUR [Concomitant]
  8. TRAMADOL HCL [Concomitant]
  9. AREDIA [Suspect]
     Indication: BONE DISORDER
     Dosage: EVERY MONTH
     Route: 042
     Dates: start: 20010101, end: 20020101
  10. FOSAMAX [Suspect]
     Dates: start: 20010101, end: 20020201
  11. LANSOPRAZOLE [Concomitant]
     Dosage: 30 MG, QD
     Route: 048
  12. GLUCOSAMINE SULFATE [Concomitant]
     Dosage: 750 MG, BID
  13. METOCLOPRAMIDE [Concomitant]
  14. PROTONIX [Concomitant]
  15. WELLBUTRIN [Concomitant]
  16. NEURONTIN [Concomitant]
  17. BUPROPION HYDROCHLORIDE [Concomitant]
     Dosage: 150 MG, BID
  18. LIPITOR [Concomitant]
  19. CELEXA [Concomitant]
     Dosage: 60 MG, QHS
  20. FELDENE [Concomitant]
  21. GLIPIZIDE [Concomitant]
  22. MAGNESIUM OXIDE [Concomitant]
     Dosage: 500 MG, QD
  23. MILRINONE [Concomitant]
  24. LISINOPRIL [Concomitant]
  25. MULTI-VITAMINS [Concomitant]
     Route: 048
  26. ZOFRAN [Concomitant]
  27. KEFLEX [Concomitant]
  28. ALLOPURINOL [Concomitant]
  29. HYDRALAZINE HCL [Concomitant]
     Dosage: 6.25 MG, TID
  30. PLAVIX [Concomitant]
  31. LASIX [Concomitant]
  32. PLENDIL [Concomitant]
     Dosage: 5 MG, QD
  33. GLUCOSAMINE [Concomitant]
     Dosage: 500 MG, TID
  34. AMOXICILLIN [Concomitant]
     Dosage: 500 MG, QD
     Route: 048
  35. GLYBURIDE [Concomitant]
     Dosage: 5 MG, BID
  36. VICODIN [Concomitant]
     Dosage: 500 MG, UNK
  37. AREDIA [Suspect]
     Indication: MULTIPLE MYELOMA
  38. MEXITIL [Concomitant]
     Dosage: 150 MG, TID
  39. AMITRIPTYLINE HCL [Concomitant]
  40. CELEBREX [Concomitant]
     Dosage: 200 MG, QD
  41. ASPIRIN [Concomitant]
     Dosage: 81 MG, QD
     Route: 048
  42. LIPITOR [Concomitant]
     Dosage: 40 MG, QD
     Route: 048
  43. GARLIC [Concomitant]
     Dosage: 500 MG, BID
     Route: 048
  44. PLETAL [Concomitant]
  45. WARFARIN SODIUM [Concomitant]
  46. JANUVIA [Concomitant]
     Dosage: 100 MG, QD
  47. TRENTAL ^ALBERT-ROUSSEL^ [Concomitant]
     Dosage: 400 MG, TID
  48. ASPIRIN [Concomitant]
  49. NAPROSYN [Concomitant]
     Dosage: 500 MG, PRN
  50. BENADRYL [Concomitant]
  51. INSULIN [Concomitant]
  52. ALDACTONE [Concomitant]
  53. CRESTOR [Concomitant]
  54. PRILOSEC [Concomitant]
     Dosage: 20 MG, QD
  55. ROBAXIN [Concomitant]
     Dosage: 750 MG 2 TABLETS QID
  56. ZOMETA [Suspect]
     Indication: BONE DISORDER
     Route: 042
     Dates: start: 20020606
  57. TOPROL-XL [Concomitant]
  58. RANITIDINE [Concomitant]
  59. OXYCONTIN [Concomitant]

REACTIONS (100)
  - PAIN [None]
  - ANXIETY [None]
  - HERPES ZOSTER [None]
  - NEOPLASM MALIGNANT [None]
  - CHOLELITHIASIS [None]
  - CELLULITIS [None]
  - SYNCOPE [None]
  - JOINT EFFUSION [None]
  - CEREBRAL SMALL VESSEL ISCHAEMIC DISEASE [None]
  - VISION BLURRED [None]
  - VOMITING [None]
  - DECREASED INTEREST [None]
  - INFECTION [None]
  - OSTEOPOROSIS [None]
  - PULMONARY EMBOLISM [None]
  - PATHOLOGICAL FRACTURE [None]
  - BLADDER CANCER [None]
  - DEPRESSION [None]
  - DIABETIC NEPHROPATHY [None]
  - DYSLIPIDAEMIA [None]
  - HYPERURICAEMIA [None]
  - EAR PAIN [None]
  - ATRIAL FIBRILLATION [None]
  - DYSPNOEA [None]
  - SCOLIOSIS [None]
  - CHRONIC OBSTRUCTIVE PULMONARY DISEASE [None]
  - ARRHYTHMIA [None]
  - INTERSTITIAL LUNG DISEASE [None]
  - CAROTID ARTERY DISEASE [None]
  - ALCOHOLIC LIVER DISEASE [None]
  - PULMONARY MASS [None]
  - COMPRESSION FRACTURE [None]
  - ATELECTASIS [None]
  - GASTROOESOPHAGEAL REFLUX DISEASE [None]
  - RHINORRHOEA [None]
  - HYPERKALAEMIA [None]
  - GENERALISED OEDEMA [None]
  - CARDIAC ARREST [None]
  - ORAL CAVITY FISTULA [None]
  - ANEURYSM [None]
  - CARDIOMYOPATHY [None]
  - LEFT VENTRICULAR HYPERTROPHY [None]
  - INTERMITTENT CLAUDICATION [None]
  - GALLBLADDER DISORDER [None]
  - ARTERIAL STENOSIS [None]
  - ARTHRALGIA [None]
  - NECK PAIN [None]
  - LYMPHADENITIS [None]
  - EJECTION FRACTION DECREASED [None]
  - OEDEMA PERIPHERAL [None]
  - BUNDLE BRANCH BLOCK RIGHT [None]
  - CARDIOMEGALY [None]
  - CEREBROVASCULAR ACCIDENT [None]
  - INTERVERTEBRAL DISC PROTRUSION [None]
  - HYPONATRAEMIA [None]
  - INTERVERTEBRAL DISC SPACE NARROWING [None]
  - SEASONAL ALLERGY [None]
  - NAUSEA [None]
  - BACK PAIN [None]
  - NEUROPATHY PERIPHERAL [None]
  - OSTEONECROSIS OF JAW [None]
  - ABSCESS [None]
  - MASTOIDITIS [None]
  - BLADDER MASS [None]
  - MITRAL VALVE INCOMPETENCE [None]
  - SPINAL OSTEOARTHRITIS [None]
  - PNEUMONIA [None]
  - RENAL FAILURE CHRONIC [None]
  - METABOLIC SYNDROME [None]
  - MONONEURITIS [None]
  - CATARACT [None]
  - SINUS CONGESTION [None]
  - GOUT [None]
  - TRICUSPID VALVE INCOMPETENCE [None]
  - INJURY [None]
  - PERIODONTITIS [None]
  - HYPERPLASIA [None]
  - BRONCHITIS [None]
  - CARDIAC FAILURE CONGESTIVE [None]
  - PULMONARY HYPERTENSION [None]
  - DILATATION ATRIAL [None]
  - MEMORY IMPAIRMENT [None]
  - HAEMATURIA [None]
  - CARDIORENAL SYNDROME [None]
  - HYPERMAGNESAEMIA [None]
  - PARAPROTEINAEMIA [None]
  - MUSCULOSKELETAL PAIN [None]
  - MYOCARDIAL INFARCTION [None]
  - ABDOMINAL PAIN UPPER [None]
  - CHOLECYSTITIS CHRONIC [None]
  - HIATUS HERNIA [None]
  - ARTERIOSCLEROSIS [None]
  - VISUAL FIELD DEFECT [None]
  - COLONIC POLYP [None]
  - TENDON DISORDER [None]
  - CARTILAGE ATROPHY [None]
  - HEADACHE [None]
  - HAEMOPTYSIS [None]
  - ERECTILE DYSFUNCTION [None]
  - TACHYCARDIA [None]
